FAERS Safety Report 5942923-8 (Version None)
Quarter: 2008Q4

REPORT INFORMATION
  Report Type: 
  Country: None (occurrence: None)
  Receive Date: 20081106
  Receipt Date: 20081104
  Transmission Date: 20090506
  Serious: Yes (Death, Other)
  Sender: FDA-Public Use
  Company Number: US-BRISTOL-MYERS SQUIBB COMPANY-14348015

PATIENT
  Age: 81 Year
  Sex: Male

DRUGS (2)
  1. ABILIFY [Suspect]
     Indication: PARANOIA
     Route: 048
     Dates: start: 20080918
  2. ABILIFY [Suspect]
     Indication: SENILE PSYCHOSIS
     Route: 048
     Dates: start: 20080918

REACTIONS (2)
  - CELLULITIS [None]
  - DEATH [None]
